FAERS Safety Report 5301007-2 (Version None)
Quarter: 2007Q2

REPORT INFORMATION
  Report Type: 
  Country: None (occurrence: None)
  Receive Date: 20070418
  Receipt Date: 20061208
  Transmission Date: 20071010
  Serious: No
  Sender: FDA-Public Use
  Company Number: US-AMGEN-US202917

PATIENT
  Sex: Female
  Weight: 121.7 kg

DRUGS (9)
  1. SENSIPAR [Suspect]
     Indication: HYPERPARATHYROIDISM SECONDARY
     Route: 065
     Dates: start: 20050401
  2. ASPIRIN [Concomitant]
     Route: 065
  3. FERROUS SULFATE [Concomitant]
     Route: 048
  4. PAXIL [Concomitant]
     Route: 065
  5. TOPROL-XL [Concomitant]
     Route: 065
  6. COLACE [Concomitant]
     Route: 065
  7. STARLIX [Concomitant]
     Route: 065
  8. IBUPROFEN [Concomitant]
     Route: 065
  9. ERYTHROMYCIN [Concomitant]
     Route: 065

REACTIONS (1)
  - ABDOMINAL DISCOMFORT [None]
